FAERS Safety Report 12284629 (Version 2)
Quarter: 2017Q2

REPORT INFORMATION
  Report Type: Spontaneous
  Country: US (occurrence: US)
  Receive Date: 20160420
  Receipt Date: 20170420
  Transmission Date: 20170830
  Serious: No
  Sender: FDA-Public Use
  Company Number: US-TEVA-624683USA

PATIENT
  Age: 45 Year
  Sex: Female
  Weight: 74 kg

DRUGS (6)
  1. PRAVASTATIN. [Suspect]
     Active Substance: PRAVASTATIN
     Indication: BLOOD TRIGLYCERIDES INCREASED
     Dates: start: 20151004
  2. ATORVASTATIN CALCIUM. [Suspect]
     Active Substance: ATORVASTATIN CALCIUM
     Route: 065
  3. PRAVASTATIN. [Suspect]
     Active Substance: PRAVASTATIN
     Indication: BLOOD CHOLESTEROL INCREASED
     Route: 065
  4. CYCLOBENZAPRINE. [Suspect]
     Active Substance: CYCLOBENZAPRINE
     Route: 065
  5. CRESTOR [Suspect]
     Active Substance: ROSUVASTATIN CALCIUM
     Route: 065
     Dates: start: 20131121
  6. LIPITOR [Suspect]
     Active Substance: ATORVASTATIN CALCIUM
     Route: 065

REACTIONS (22)
  - Fall [Recovered/Resolved]
  - Blood triglycerides increased [Unknown]
  - Hepatic enzyme increased [Unknown]
  - Rash [Unknown]
  - Muscular weakness [Unknown]
  - Musculoskeletal stiffness [Unknown]
  - Laceration [Unknown]
  - Arthritis [Unknown]
  - Abdominal distension [Unknown]
  - Paraesthesia [Unknown]
  - Liver disorder [Unknown]
  - Pain [Unknown]
  - Erythema [Unknown]
  - Accident [Unknown]
  - Asthenia [Unknown]
  - Muscle spasms [Unknown]
  - Arthralgia [Unknown]
  - Adverse event [Unknown]
  - Dry mouth [Unknown]
  - Rib fracture [Unknown]
  - Impaired work ability [Unknown]
  - Blood cholesterol increased [Recovered/Resolved]

NARRATIVE: CASE EVENT DATE: 201311
